FAERS Safety Report 21763452 (Version 3)
Quarter: 2023Q1

REPORT INFORMATION
  Report Type: Spontaneous
  Country: US (occurrence: US)
  Receive Date: 20221221
  Receipt Date: 20230202
  Transmission Date: 20230417
  Serious: No
  Sender: FDA-Public Use
  Company Number: US-SANOFI-01412970

PATIENT
  Age: 78 Year
  Sex: Male

DRUGS (1)
  1. SOLIQUA 100/33 [Suspect]
     Active Substance: INSULIN GLARGINE\LIXISENATIDE
     Indication: Diabetes mellitus
     Dosage: 46 IU, QD

REACTIONS (3)
  - Hypoacusis [Recovering/Resolving]
  - Blood glucose increased [Unknown]
  - Device defective [Unknown]
